FAERS Safety Report 25288048 (Version 1)
Quarter: 2025Q2

REPORT INFORMATION
  Report Type: Spontaneous
  Country: US (occurrence: None)
  Receive Date: 20250509
  Receipt Date: 20250509
  Transmission Date: 20250717
  Serious: Yes (Other)
  Sender: FDA-CTU
  Company Number: None

PATIENT
  Sex: Male

DRUGS (11)
  1. NUCALA [Suspect]
     Active Substance: MEPOLIZUMAB
     Indication: Asthma
     Dosage: INJECT 1 PEN (100 MG TOTAL) UNDER THE SKIN (SUBCUTANEOUS INJECTION) EVERY 28 (TWENTY-EIGHT) DAYS
     Route: 058
     Dates: start: 20231201
  2. ADACEL INJ [Concomitant]
  3. ALBUTEROL AER HFA [Concomitant]
  4. DUPIXENT [Concomitant]
     Active Substance: DUPILUMAB
  5. FINASTERIDE [Concomitant]
     Active Substance: FINASTERIDE
  6. IPRATROPIUM/ SOL ALBUTER [Concomitant]
  7. METHYLPRED TAB [Concomitant]
  8. PANTOPRAZOLE TAB [Concomitant]
  9. PREDNISONE [Concomitant]
     Active Substance: PREDNISONE
  10. SERTRALINE HYDROCHLORIDE [Concomitant]
     Active Substance: SERTRALINE HYDROCHLORIDE
  11. TRELEGY ELLIPTA [Concomitant]
     Active Substance: FLUTICASONE FUROATE\UMECLIDINIUM BROMIDE\VILANTEROL TRIFENATATE

REACTIONS (2)
  - Asthma [None]
  - Quality of life decreased [None]
